FAERS Safety Report 12964291 (Version 1)
Quarter: 2016Q4

REPORT INFORMATION
  Report Type: Spontaneous
  Country: US (occurrence: US)
  Receive Date: 20161122
  Receipt Date: 20161122
  Transmission Date: 20170207
  Serious: No
  Sender: FDA-Public Use
  Company Number: US-PFIZER INC-2016535012

PATIENT
  Age: 88 Year
  Sex: Male
  Weight: 79.37 kg

DRUGS (2)
  1. DILANTIN [Suspect]
     Active Substance: PHENYTOIN
     Dosage: UNK
  2. DILANTIN [Suspect]
     Active Substance: PHENYTOIN
     Dosage: 225 MG, 2X/DAY

REACTIONS (5)
  - Toxicity to various agents [Unknown]
  - Emotional disorder [Unknown]
  - Anticonvulsant drug level below therapeutic [Unknown]
  - Drug intolerance [Unknown]
  - Feeling abnormal [Unknown]
